FAERS Safety Report 7271638 (Version 5)
Quarter: 2020Q3

REPORT INFORMATION
  Report Type: Report from Study
  Country: ES (occurrence: ES)
  Receive Date: 20100205
  Receipt Date: 20100831
  Transmission Date: 20201104
  Serious: Yes (Hospitalization)
  Sender: FDA-Public Use
  Company Number: ES-WYE-H13332010

PATIENT
  Age: 62 Year
  Sex: Female
  Weight: 58 kg

DRUGS (13)
  1. CAPECITABINE. [Suspect]
     Active Substance: CAPECITABINE
     Indication: BREAST CANCER METASTATIC
     Dosage: 3200 MG 2 WEEKS EVERY 3
     Route: 048
     Dates: start: 20091222, end: 20100126
  2. OMEPRAZOLE. [Concomitant]
     Active Substance: OMEPRAZOLE
     Indication: GASTRITIS PROPHYLAXIS
     Dosage: NOT PROVIDED
     Route: 065
  3. DIOSMIN [Concomitant]
     Active Substance: DIOSMIN
     Indication: PERIPHERAL VENOUS DISEASE
     Dosage: NOT PROVIDED
     Route: 065
  4. PREGABALIN. [Concomitant]
     Active Substance: PREGABALIN
     Indication: NEURALGIA
     Dosage: NOT PROVIDED
     Route: 065
     Dates: start: 200802
  5. LAPATINIB [Suspect]
     Active Substance: LAPATINIB
     Dosage: 1000 MG
     Route: 048
  6. ENALAPRIL [Concomitant]
     Active Substance: ENALAPRIL
     Indication: HYPERTENSION
     Dosage: NOT PROVIDED
     Route: 065
     Dates: start: 200802
  7. BROMAZEPAM [Concomitant]
     Active Substance: BROMAZEPAM
     Indication: ANXIETY
     Dosage: NOT PROVIDED
     Route: 065
  8. LAPATINIB [Suspect]
     Active Substance: LAPATINIB
     Indication: BREAST CANCER METASTATIC
     Dosage: 1500 MG
     Route: 048
     Dates: start: 20100111, end: 20100211
  9. CAPECITABINE. [Suspect]
     Active Substance: CAPECITABINE
     Dosage: 2400 MG
     Route: 048
  10. PAROXETINE HYDROCHLORIDE. [Concomitant]
     Active Substance: PAROXETINE HYDROCHLORIDE
     Indication: DEPRESSION
     Dosage: NOT PROVIDED
     Route: 065
  11. CAPECITABINE. [Suspect]
     Active Substance: CAPECITABINE
     Dosage: UNKNOWN
     Route: 048
     Dates: start: 20100211
  12. LAPATINIB [Suspect]
     Active Substance: LAPATINIB
     Route: 048
     Dates: start: 20091222, end: 20100126
  13. LAPATINIB [Suspect]
     Active Substance: LAPATINIB
     Dosage: UNKNOWN
     Route: 048
     Dates: start: 20100211

REACTIONS (3)
  - Diarrhoea [Recovered/Resolved]
  - Fatigue [Recovered/Resolved]
  - Hypokalaemia [Recovered/Resolved]

NARRATIVE: CASE EVENT DATE: 20100125
